FAERS Safety Report 4409292-6 (Version None)
Quarter: 2004Q3

REPORT INFORMATION
  Report Type: 
  Country: None (occurrence: None)
  Receive Date: 20040722
  Receipt Date: 20040707
  Transmission Date: 20050211
  Serious: Yes (Hospitalization)
  Sender: FDA-Public Use
  Company Number: 199583

PATIENT
  Age: 63 Year
  Sex: Female
  Weight: 50.3493 kg

DRUGS (4)
  1. AVONEX [Suspect]
     Indication: MULTIPLE SCLEROSIS
     Dosage: 30 MCG QW IM
     Route: 030
     Dates: start: 19970101, end: 20010101
  2. DARVOCET-N 100 [Concomitant]
  3. KLONOPIN [Concomitant]
  4. MYSOLINE [Concomitant]

REACTIONS (3)
  - CHRONIC OBSTRUCTIVE AIRWAYS DISEASE EXACERBATED [None]
  - LUNG INFECTION [None]
  - MULTIPLE SCLEROSIS [None]
